FAERS Safety Report 4933409-8 (Version None)
Quarter: 2006Q1

REPORT INFORMATION
  Report Type: 
  Country: None (occurrence: None)
  Receive Date: 20060306
  Receipt Date: 19861008
  Transmission Date: 20060701
  Serious: Yes (Hospitalization)
  Sender: FDA-Public Use
  Company Number: US-GLAXOSMITHKLINE-A0197968A

PATIENT
  Age: 75 Year
  Sex: Female
  Weight: 54.87 kg

DRUGS (24)
  1. DYAZIDE [Suspect]
     Indication: HYPERTENSION
     Dosage: 150MG PER DAY
     Route: 048
     Dates: start: 19790405
  2. PAXIL [Suspect]
  3. COMPAZINE [Suspect]
  4. ALKA-SELTZER [Concomitant]
  5. AMPICILLIN SODIUM [Concomitant]
  6. AVEENO BATH [Concomitant]
  7. BENADRYL [Concomitant]
     Indication: PRURITUS
     Dosage: 150MG PER DAY
     Dates: start: 19800129
  8. CATAPRES [Concomitant]
     Dates: start: 19870101
  9. CHOLESTYRAMINE [Concomitant]
     Dates: start: 19800129
  10. COLACE [Concomitant]
     Dosage: 120MG PER DAY
     Dates: start: 19800129
  11. DYRENIUM [Concomitant]
  12. EXCEDRIN [Concomitant]
  13. HYDROCHLOROTHIAZIDE [Concomitant]
     Dates: end: 19790405
  14. KENALOG [Concomitant]
     Dates: start: 19830101, end: 19850101
  15. LOPRESSOR [Concomitant]
     Indication: HYPERTENSION
     Dates: start: 19870305, end: 19870312
  16. METAMUCIL [Concomitant]
     Dosage: 10CC PER DAY
     Dates: start: 19800129
  17. PAREPECTOLIN [Concomitant]
  18. TENORMIN [Concomitant]
     Indication: HYPERTENSION
     Dosage: 200MG PER DAY
     Dates: end: 19870305
  19. TENORMIN [Concomitant]
     Route: 048
     Dates: start: 19870312
  20. TRYPTOPHAN [Concomitant]
  21. TYLENOL (CAPLET) [Concomitant]
     Indication: PAIN IN EXTREMITY
  22. VITAMIN K [Concomitant]
     Dosage: 10MG PER DAY
     Route: 048
     Dates: start: 19800129
  23. VITAMINS [Concomitant]
  24. ZAROXOLYN [Concomitant]
     Dates: start: 19870101

REACTIONS (52)
  - ADVERSE EVENT [None]
  - ALOPECIA [None]
  - AMNESIA [None]
  - APPLICATION SITE DISCOLOURATION [None]
  - ATROPHY [None]
  - BALANCE DISORDER [None]
  - BLOOD DISORDER [None]
  - BLOOD PRESSURE INCREASED [None]
  - CARDIAC DISORDER [None]
  - CARDIAC FAILURE [None]
  - CATARACT [None]
  - CHEMICAL POISONING [None]
  - CHOKING [None]
  - COUGH [None]
  - DEPRESSION [None]
  - DERMATITIS [None]
  - DIARRHOEA [None]
  - DIZZINESS [None]
  - DYSPHAGIA [None]
  - EATING DISORDER [None]
  - EYE DISORDER [None]
  - EYE INFLAMMATION [None]
  - HEART INJURY [None]
  - HEART RATE INCREASED [None]
  - HEPATITIS [None]
  - HYPERCHLORHYDRIA [None]
  - HYPERKALAEMIA [None]
  - HYPERSENSITIVITY [None]
  - HYPERTENSION [None]
  - HYPOACUSIS [None]
  - HYPOKALAEMIA [None]
  - ILL-DEFINED DISORDER [None]
  - ILLUSION [None]
  - INSOMNIA [None]
  - JAUNDICE [None]
  - LETHARGY [None]
  - LYMPHADENOPATHY [None]
  - MUSCLE SPASMS [None]
  - OEDEMA PERIPHERAL [None]
  - PAIN [None]
  - PNEUMONITIS [None]
  - RASH [None]
  - SKIN ULCER [None]
  - SWELLING [None]
  - SYNCOPE [None]
  - TEMPERATURE REGULATION DISORDER [None]
  - THROAT IRRITATION [None]
  - TINNITUS [None]
  - VISION BLURRED [None]
  - VISUAL ACUITY REDUCED [None]
  - WEIGHT DECREASED [None]
  - WRIST FRACTURE [None]
